FAERS Safety Report 7238785-1 (Version None)
Quarter: 2011Q1

REPORT INFORMATION
  Report Type: 
  Country: None (occurrence: None)
  Receive Date: 20110121
  Receipt Date: 20110119
  Transmission Date: 20110831
  Serious: Yes (Other)
  Sender: FDA-Public Use
  Company Number: US-PFIZER INC-2011013683

PATIENT
  Sex: Male

DRUGS (3)
  1. OXYCODONE [Concomitant]
  2. VIAGRA [Suspect]
     Indication: ERECTILE DYSFUNCTION
     Dosage: UNK
     Dates: start: 20101101
  3. OXYCODONE [Concomitant]
     Indication: BACK PAIN
     Dosage: UNK

REACTIONS (2)
  - SEMEN ANALYSIS ABNORMAL [None]
  - PENIS DISORDER [None]
